FAERS Safety Report 5973008-2 (Version None)
Quarter: 2008Q4

REPORT INFORMATION
  Report Type: 
  Country: None (occurrence: None)
  Receive Date: 20081201
  Receipt Date: 20081126
  Transmission Date: 20090506
  Serious: Yes (Hospitalization, Other)
  Sender: FDA-Public Use
  Company Number: PHBS2008MX06483

PATIENT
  Age: 18 Year
  Sex: Female

DRUGS (4)
  1. DICLOFENAC SODIUM [Suspect]
     Dosage: 1 TABLET/DAY
     Route: 048
  2. HYDROCORTISONE [Suspect]
     Route: 042
  3. THALIDOMIDE [Concomitant]
  4. MONTELUKAST SODIUM [Concomitant]

REACTIONS (8)
  - ACUTE RESPIRATORY DISTRESS SYNDROME [None]
  - ASTHMA [None]
  - BASOPHIL PERCENTAGE INCREASED [None]
  - BRONCHOSPASM [None]
  - ENDOTRACHEAL INTUBATION [None]
  - MECHANICAL VENTILATION [None]
  - PNEUMOTHORAX [None]
  - TRACHEOSTOMY [None]
